FAERS Safety Report 10683705 (Version 2)
Quarter: 2015Q1

REPORT INFORMATION
  Report Type: Spontaneous
  Country: IT (occurrence: IT)
  Receive Date: 20141230
  Receipt Date: 20150316
  Transmission Date: 20150720
  Serious: Yes (Hospitalization)
  Sender: FDA-Public Use
  Company Number: IT-BAXTER-2014BAX076959

PATIENT
  Age: 7 Year
  Sex: Male
  Weight: 41 kg

DRUGS (4)
  1. VINCRISTINA [Suspect]
     Active Substance: VINCRISTINE
     Indication: LEUKAEMIA
     Route: 042
     Dates: start: 20141031, end: 20141106
  2. METHOTREXATE [Suspect]
     Active Substance: METHOTREXATE
     Indication: LEUKAEMIA
     Route: 042
     Dates: start: 20141031, end: 20141106
  3. RITUXIMAB [Suspect]
     Active Substance: RITUXIMAB
     Indication: LEUKAEMIA
     Route: 042
     Dates: start: 20141030, end: 20141106
  4. HOLOXAN [Suspect]
     Active Substance: IFOSFAMIDE
     Indication: LEUKAEMIA
     Route: 042
     Dates: start: 20141031, end: 20141104

REACTIONS (1)
  - Stomatitis necrotising [Recovered/Resolved]

NARRATIVE: CASE EVENT DATE: 20141106
